FAERS Safety Report 7058497-7 (Version None)
Quarter: 2010Q4

REPORT INFORMATION
  Report Type: 
  Country: None (occurrence: None)
  Receive Date: 20101022
  Receipt Date: 20101018
  Transmission Date: 20110411
  Serious: Yes (Death)
  Sender: FDA-Public Use
  Company Number: US-CELGENEUS-163-21880-10102068

PATIENT
  Sex: Female

DRUGS (4)
  1. REVLIMID [Suspect]
     Indication: MULTIPLE MYELOMA
     Route: 048
     Dates: start: 20070702
  2. REVLIMID [Suspect]
     Dosage: 20MG-15MG
     Route: 048
     Dates: start: 20071001
  3. REVLIMID [Suspect]
     Route: 048
     Dates: start: 20080501
  4. REVLIMID [Suspect]
     Route: 048
     Dates: start: 20080501

REACTIONS (1)
  - DEATH [None]
